FAERS Safety Report 7519192-0 (Version None)
Quarter: 2011Q2

REPORT INFORMATION
  Report Type: 
  Country: None (occurrence: None)
  Receive Date: 20110602
  Receipt Date: 20110420
  Transmission Date: 20111010
  Serious: No
  Sender: FDA-Public Use
  Company Number: US-BRISTOL-MYERS SQUIBB COMPANY-15688260

PATIENT
  Age: 51 Year
  Sex: Male

DRUGS (1)
  1. KOMBIGLYZE XR [Suspect]
     Dosage: 1DF:5/1000 MG  DURATION OF THERAPY:2 TO 3 WKS

REACTIONS (3)
  - HALLUCINATION [None]
  - ABNORMAL DREAMS [None]
  - HEADACHE [None]
